FAERS Safety Report 25948073 (Version 1)
Quarter: 2025Q4

REPORT INFORMATION
  Report Type: Spontaneous
  Country: CN (occurrence: CN)
  Receive Date: 20251022
  Receipt Date: 20251022
  Transmission Date: 20260119
  Serious: Yes (Hospitalization, Other)
  Sender: BAXTER
  Company Number: None

PATIENT
  Age: 66 Year
  Sex: Female
  Weight: 50 kg

DRUGS (10)
  1. CYCLOPHOSPHAMIDE [Suspect]
     Active Substance: CYCLOPHOSPHAMIDE
     Indication: Diffuse large B-cell lymphoma
     Dosage: 1000 MG, QD
     Route: 041
     Dates: start: 20250928, end: 20250928
  2. SODIUM CHLORIDE [Suspect]
     Active Substance: SODIUM CHLORIDE
     Dosage: 150 ML, QD, IVGTT, D0, (WITH POLATUZUMAB VEDOTIN)
     Route: 041
     Dates: start: 20250925, end: 20250925
  3. SODIUM CHLORIDE [Suspect]
     Active Substance: SODIUM CHLORIDE
     Dosage: 540 ML, QD, IVGTT, D1, (WITH RITUXIMAB)
     Route: 041
     Dates: start: 20250926, end: 20250926
  4. SODIUM CHLORIDE [Suspect]
     Active Substance: SODIUM CHLORIDE
     Dosage: 600 ML, QD, IVGTT, D1-D2, (WITH METHOTREXATE)
     Route: 041
     Dates: start: 20250926, end: 20250927
  5. RITUXIMAB [Suspect]
     Active Substance: RITUXIMAB
     Indication: Diffuse large B-cell lymphoma
     Dosage: 600 MG, QD
     Route: 041
     Dates: start: 20250926, end: 20250926
  6. EPIRUBICIN HYDROCHLORIDE [Suspect]
     Active Substance: EPIRUBICIN HYDROCHLORIDE
     Indication: Diffuse large B-cell lymphoma
     Dosage: 60 MG, QD
     Route: 041
     Dates: start: 20250928, end: 20250928
  7. POLATUZUMAB VEDOTIN [Suspect]
     Active Substance: POLATUZUMAB VEDOTIN
     Indication: Diffuse large B-cell lymphoma
     Dosage: 90 MG, QD
     Route: 041
     Dates: start: 20250925, end: 20250925
  8. METHOTREXATE [Suspect]
     Active Substance: METHOTREXATE
     Indication: Diffuse large B-cell lymphoma
     Dosage: 1.5 G, QD
     Route: 041
     Dates: start: 20250926, end: 20250927
  9. SODIUM CHLORIDE [Suspect]
     Active Substance: SODIUM CHLORIDE
     Indication: Medication dilution
     Dosage: 500 ML, QD, IVGTT, D3, (WITH CYCLOPHOSPHAMIDE)
     Route: 041
     Dates: start: 20250928, end: 20250928
  10. SODIUM CHLORIDE [Suspect]
     Active Substance: SODIUM CHLORIDE
     Dosage: 100 ML, QD, IVGTT, D3, (WITH EPIRUBICIN)
     Route: 041
     Dates: start: 20250928, end: 20250928

REACTIONS (10)
  - Myelosuppression [Recovering/Resolving]
  - White blood cell count decreased [Recovered/Resolved]
  - Neutrophil count decreased [Recovered/Resolved]
  - Platelet count decreased [Recovered/Resolved]
  - Full blood count decreased [Recovered/Resolved]
  - Diarrhoea [Recovering/Resolving]
  - Pyrexia [Recovering/Resolving]
  - Temperature intolerance [Unknown]
  - Abdominal pain lower [Not Recovered/Not Resolved]
  - Infection [Unknown]

NARRATIVE: CASE EVENT DATE: 20251003
